FAERS Safety Report 7779689-5 (Version None)
Quarter: 2011Q3

REPORT INFORMATION
  Report Type: 
  Country: None (occurrence: None)
  Receive Date: 20110927
  Receipt Date: 20110920
  Transmission Date: 20111222
  Serious: Yes (Other)
  Sender: FDA-Public Use
  Company Number: US-PFIZER INC-2011223426

PATIENT
  Sex: Female
  Weight: 90.703 kg

DRUGS (6)
  1. SINGULAIR [Concomitant]
     Indication: ASTHMA
     Dosage: UNK
  2. ZOLOFT [Concomitant]
     Indication: DEPRESSION
     Dosage: UNK
  3. NORVASC [Concomitant]
     Indication: HYPERTENSION
     Dosage: UNK
  4. MORPHINE [Concomitant]
     Indication: PAIN
     Dosage: 180 MG, UNK
  5. LYRICA [Suspect]
     Indication: FIBROMYALGIA
     Dosage: 75 MG, 2X/DAY
     Route: 048
     Dates: start: 20110902
  6. MORPHINE [Concomitant]
     Indication: FIBROMYALGIA

REACTIONS (3)
  - URINARY INCONTINENCE [None]
  - BLADDER DISORDER [None]
  - BLADDER SPHINCTER ATONY [None]
